FAERS Safety Report 22101950 (Version 2)
Quarter: 2023Q2

REPORT INFORMATION
  Report Type: Spontaneous
  Country: CA (occurrence: CA)
  Receive Date: 20230316
  Receipt Date: 20230505
  Transmission Date: 20230721
  Serious: Yes (Other)
  Sender: FDA-Public Use
  Company Number: CA-CELLTRION INC.-2023CA005598

PATIENT

DRUGS (2)
  1. INFLECTRA [Suspect]
     Active Substance: INFLIXIMAB-DYYB
     Indication: Colitis ulcerative
     Dosage: 1200 MG
     Route: 042
     Dates: start: 20230218, end: 20230218
  2. REMICADE [Concomitant]
     Active Substance: INFLIXIMAB
     Dosage: 1200 MG
     Dates: start: 20230215

REACTIONS (5)
  - Colectomy [Unknown]
  - Ileostomy [Unknown]
  - Pelvic fluid collection [Unknown]
  - Ileus [Unknown]
  - Postoperative wound infection [Unknown]

NARRATIVE: CASE EVENT DATE: 20230222
